FAERS Safety Report 8766910 (Version 1)
Quarter: 2012Q4

REPORT INFORMATION
  Report Type: 
  Country: BR (occurrence: BR)
  Receive Date: 20120903
  Receipt Date: 20120903
  Transmission Date: 20130627
  Serious: Yes (Other)
  Sender: FDA-Public Use
  Company Number: BR-PFIZER INC-2012212787

PATIENT
  Age: 64 Year
  Sex: Female

DRUGS (2)
  1. CELEBRA [Suspect]
     Indication: PAIN
     Dosage: UNK
     Dates: start: 2003, end: 2011
  2. CONCOR [Concomitant]
     Indication: HYPERTENSION
     Dosage: UNK
     Dates: start: 1992

REACTIONS (2)
  - Glaucoma [Not Recovered/Not Resolved]
  - Arthropathy [Not Recovered/Not Resolved]
